FAERS Safety Report 22867180 (Version 3)
Quarter: 2023Q4

REPORT INFORMATION
  Report Type: Report from Study
  Country: AU (occurrence: AU)
  Receive Date: 20230825
  Receipt Date: 20231109
  Transmission Date: 20240109
  Serious: Yes (Hospitalization)
  Sender: FDA-Public Use
  Company Number: AU-SA-0002903435

PATIENT
  Age: 72 Year
  Sex: Female
  Weight: 39.8 kg

DRUGS (26)
  1. ISATUXIMAB [Suspect]
     Active Substance: ISATUXIMAB
     Indication: Plasma cell myeloma
     Dosage: 1400MG, SITE OF ADMINISTRATION:  LOWER RIGHT ABDOMEN
     Route: 058
     Dates: start: 20230720, end: 20230720
  2. ISATUXIMAB [Suspect]
     Active Substance: ISATUXIMAB
     Dosage: 1400MG, SITE OF ADMINISTRATION:  LOWER LEFT ABDOMEN
     Route: 058
     Dates: start: 20230817, end: 20230817
  3. CARFILZOMIB [Suspect]
     Active Substance: CARFILZOMIB
     Indication: Plasma cell myeloma
     Dosage: 27.6MG
     Route: 042
     Dates: start: 20230720, end: 20230720
  4. CARFILZOMIB [Suspect]
     Active Substance: CARFILZOMIB
     Dosage: 77.3 UNK, INTENDED DOSE:  56 MG/M2
     Route: 042
     Dates: start: 20230818, end: 20230818
  5. DEXAMETHASONE [Suspect]
     Active Substance: DEXAMETHASONE
     Indication: Plasma cell myeloma
     Dosage: 20MG
     Route: 042
     Dates: start: 20230720, end: 20230720
  6. DEXAMETHASONE [Suspect]
     Active Substance: DEXAMETHASONE
     Indication: Plasma cell myeloma
     Dosage: 20 MG
     Route: 048
     Dates: start: 20230721, end: 20230721
  7. DEXAMETHASONE [Suspect]
     Active Substance: DEXAMETHASONE
     Dosage: 20 MG
     Route: 048
     Dates: start: 20230818, end: 20230818
  8. VALACYCLOVIR HYDROCHLORIDE [Concomitant]
     Active Substance: VALACYCLOVIR HYDROCHLORIDE
     Indication: Prophylaxis
     Dosage: UNK
     Route: 048
     Dates: start: 202304
  9. MAGNESIUM ASPARTATE [Concomitant]
     Active Substance: MAGNESIUM ASPARTATE
     Indication: Prophylaxis
     Dosage: UNK
     Route: 048
     Dates: start: 2022
  10. FUROSEMIDE [Concomitant]
     Active Substance: FUROSEMIDE
     Indication: Prophylaxis
     Dosage: UNK
     Route: 048
     Dates: start: 202306
  11. CALCITRIOL [Concomitant]
     Active Substance: CALCITRIOL
     Indication: Prophylaxis
     Route: 048
     Dates: start: 2022, end: 20230817
  12. ATOVAQUONE [Concomitant]
     Active Substance: ATOVAQUONE
     Indication: Prophylaxis
     Dosage: UNK
     Route: 048
     Dates: start: 202304
  13. NEBIVOLOL [Concomitant]
     Active Substance: NEBIVOLOL
     Indication: Prophylaxis
     Dosage: UNK
     Route: 048
     Dates: start: 2018
  14. PANTOPRAZOLE [Concomitant]
     Active Substance: PANTOPRAZOLE
     Indication: Prophylaxis
     Dosage: UNK
     Route: 048
     Dates: start: 202304
  15. ALLOPURINOL [Concomitant]
     Active Substance: ALLOPURINOL
     Indication: Prophylaxis
     Dosage: UNK
     Route: 048
     Dates: start: 202304
  16. NALOXONE HYDROCHLORIDE\OXYCODONE HYDROCHLORIDE [Concomitant]
     Active Substance: NALOXONE HYDROCHLORIDE\OXYCODONE HYDROCHLORIDE
     Indication: Prophylaxis
     Dosage: 1.5 MG
     Route: 048
     Dates: start: 202303
  17. NALOXONE HYDROCHLORIDE\OXYCODONE HYDROCHLORIDE [Concomitant]
     Active Substance: NALOXONE HYDROCHLORIDE\OXYCODONE HYDROCHLORIDE
     Dosage: 1.5 MG
     Route: 048
     Dates: start: 202303
  18. ACETAMINOPHEN [Concomitant]
     Active Substance: ACETAMINOPHEN
     Indication: Prophylaxis
     Dosage: 500 MG
     Route: 048
     Dates: start: 202304
  19. ACETAMINOPHEN [Concomitant]
     Active Substance: ACETAMINOPHEN
     Dosage: 100 MG
     Route: 048
     Dates: start: 20230720
  20. ACETAMINOPHEN [Concomitant]
     Active Substance: ACETAMINOPHEN
     Dosage: UNK
     Route: 048
     Dates: start: 20230817, end: 20230817
  21. MOVICOL [Concomitant]
     Active Substance: POLYETHYLENE GLYCOL 3350\POTASSIUM CHLORIDE\SODIUM BICARBONATE\SODIUM CHLORIDE
     Indication: Prophylaxis
     Dosage: UNK
     Route: 048
     Dates: start: 20230805
  22. DOCUSATE SODIUM\SENNOSIDES A AND B [Concomitant]
     Active Substance: DOCUSATE SODIUM\SENNOSIDES A AND B
     Indication: Prophylaxis
     Dosage: UNK
     Route: 048
     Dates: start: 20230805
  23. MOLNUPIRAVIR [Concomitant]
     Active Substance: MOLNUPIRAVIR
     Route: 048
     Dates: start: 20230805, end: 20230810
  24. CETIRIZINE [Concomitant]
     Active Substance: CETIRIZINE HYDROCHLORIDE
     Indication: Prophylaxis
     Dosage: UNK
     Route: 048
     Dates: start: 20230817, end: 20230817
  25. DEXAMETHASONE [Concomitant]
     Active Substance: DEXAMETHASONE
     Indication: Prophylaxis
     Dosage: UNK
     Route: 048
     Dates: start: 20230817, end: 20230817
  26. DEXAMETHASONE [Concomitant]
     Active Substance: DEXAMETHASONE
     Dosage: UNK
     Route: 048
     Dates: start: 20230818, end: 20230818

REACTIONS (1)
  - Diarrhoea [Recovered/Resolved]

NARRATIVE: CASE EVENT DATE: 20230811
